FAERS Safety Report 22215996 (Version 1)
Quarter: 2023Q2

REPORT INFORMATION
  Report Type: Spontaneous
  Country: JP (occurrence: JP)
  Receive Date: 20230417
  Receipt Date: 20230417
  Transmission Date: 20230722
  Serious: Yes (Other)
  Sender: FDA-Public Use
  Company Number: JP-JNJFOC-20230430638

PATIENT
  Age: 70 Year
  Sex: Male

DRUGS (3)
  1. TRAMCET [Suspect]
     Active Substance: ACETAMINOPHEN\TRAMADOL
     Indication: Product used for unknown indication
     Route: 048
     Dates: start: 2017, end: 2023
  2. TRAMCET [Suspect]
     Active Substance: ACETAMINOPHEN\TRAMADOL
     Route: 048
     Dates: start: 2023, end: 2023
  3. TRAMCET [Suspect]
     Active Substance: ACETAMINOPHEN\TRAMADOL
     Dosage: DOSE UNKNOWN
     Route: 048
     Dates: start: 2023

REACTIONS (5)
  - Withdrawal syndrome [Not Recovered/Not Resolved]
  - Pain [Unknown]
  - Eczema [Unknown]
  - Pruritus [Unknown]
  - Bronchitis [Unknown]

NARRATIVE: CASE EVENT DATE: 20230101
